FAERS Safety Report 8380041-2 (Version None)
Quarter: 2012Q2

REPORT INFORMATION
  Report Type: 
  Country: None (occurrence: None)
  Receive Date: 20120523
  Receipt Date: 20120510
  Transmission Date: 20120825
  Serious: Yes (Hospitalization)
  Sender: FDA-Public Use
  Company Number: US-GLAXOSMITHKLINE-A0881841A

PATIENT
  Age: 58 Year
  Sex: Female

DRUGS (7)
  1. EVISTA [Concomitant]
  2. AVANDIA [Suspect]
     Indication: DIABETES MELLITUS
     Dosage: 8MG PER DAY
     Route: 048
     Dates: start: 20010901, end: 20020701
  3. PREVACID [Concomitant]
  4. GLUCOVANCE [Concomitant]
  5. VASOTEC [Concomitant]
  6. COMBIVENT [Concomitant]
  7. LIPITOR [Concomitant]

REACTIONS (2)
  - CARDIAC FAILURE CONGESTIVE [None]
  - MYOCARDIAL INFARCTION [None]
